FAERS Safety Report 16163363 (Version 1)
Quarter: 2019Q2

REPORT INFORMATION
  Report Type: Spontaneous
  Country: DE (occurrence: DE)
  Receive Date: 20190405
  Receipt Date: 20190405
  Transmission Date: 20190711
  Serious: Yes (Other)
  Sender: FDA-Public Use
  Company Number: DE-DRREDDYS-GER/GER/19/0109079

PATIENT
  Age: 66 Year
  Sex: Female

DRUGS (10)
  1. FULVESTRANT. [Suspect]
     Active Substance: FULVESTRANT
     Indication: BREAST CANCER RECURRENT
  2. CAPECITABINE. [Suspect]
     Active Substance: CAPECITABINE
     Indication: BREAST CANCER RECURRENT
     Dates: start: 2012, end: 2012
  3. 5-FLUOROPYRIMIDINE [Suspect]
     Active Substance: 5-FLUOROPYRIMIDINE
     Indication: INVASIVE BREAST CARCINOMA
     Dosage: 3 CYCLES
  4. CYCLOPHOSPHAMIDE. [Suspect]
     Active Substance: CYCLOPHOSPHAMIDE
     Indication: INVASIVE BREAST CARCINOMA
     Dosage: 3 CYCLES
  5. EVEROLIMUS. [Suspect]
     Active Substance: EVEROLIMUS
     Indication: BREAST CANCER RECURRENT
  6. EPIRUBICIN [Suspect]
     Active Substance: EPIRUBICIN
     Indication: INVASIVE BREAST CARCINOMA
     Dosage: 3 CYCLES
  7. VINORELBINE [Suspect]
     Active Substance: VINORELBINE\VINORELBINE TARTRATE
     Indication: BREAST CANCER RECURRENT
     Dates: start: 2012, end: 2012
  8. LETROZOLE. [Suspect]
     Active Substance: LETROZOLE
     Indication: INVASIVE BREAST CARCINOMA
  9. EXEMESTANE. [Suspect]
     Active Substance: EXEMESTANE
     Indication: BREAST CANCER RECURRENT
  10. DOCETAXEL. [Suspect]
     Active Substance: DOCETAXEL
     Indication: INVASIVE BREAST CARCINOMA
     Dosage: 3 CYCLES

REACTIONS (3)
  - Mucosal inflammation [Unknown]
  - Breast cancer recurrent [Recovered/Resolved]
  - Multiple-drug resistance [Unknown]

NARRATIVE: CASE EVENT DATE: 2012
